FAERS Safety Report 7123866-3 (Version None)
Quarter: 2010Q4

REPORT INFORMATION
  Report Type: 
  Country: None (occurrence: None)
  Receive Date: 20101125
  Receipt Date: 20101122
  Transmission Date: 20110411
  Serious: Yes (Hospitalization)
  Sender: FDA-Public Use
  Company Number: PHHY2010US79410

PATIENT
  Sex: Male

DRUGS (2)
  1. TOBI [Suspect]
     Indication: OBSTRUCTIVE AIRWAYS DISORDER
     Dosage: 300 MG, BID
     Dates: start: 20101020, end: 20101110
  2. TOBI [Suspect]
     Indication: BRONCHITIS CHRONIC

REACTIONS (1)
  - INCREASED BRONCHIAL SECRETION [None]
